FAERS Safety Report 6173734-9 (Version None)
Quarter: 2009Q2

REPORT INFORMATION
  Report Type: 
  Country: None (occurrence: None)
  Receive Date: 20090430
  Receipt Date: 20090430
  Transmission Date: 20091009
  Serious: Yes (Hospitalization, Other)
  Sender: FDA-Public Use
  Company Number: PHHO2009US03606

PATIENT
  Sex: Female
  Weight: 52.7 kg

DRUGS (2)
  1. DIOVAN T30230+TAB+HY [Suspect]
     Dosage: 160 MG, UNK
     Route: 048
     Dates: start: 20080711, end: 20080904
  2. IMMUNOSUPPRESSANTS [Concomitant]

REACTIONS (6)
  - BLOOD CREATININE INCREASED [None]
  - CHEST X-RAY ABNORMAL [None]
  - COUGH [None]
  - DEHYDRATION [None]
  - SINUSITIS [None]
  - TONSILLAR HYPERTROPHY [None]
